FAERS Safety Report 12435114 (Version 1)
Quarter: 2016Q2

REPORT INFORMATION
  Report Type: Spontaneous
  Country: US (occurrence: US)
  Receive Date: 20160603
  Receipt Date: 20160603
  Transmission Date: 20160815
  Serious: No
  Sender: FDA-Public Use
  Company Number: US-ROCHE-1308547

PATIENT
  Sex: Female

DRUGS (9)
  1. DIOVAN [Concomitant]
     Active Substance: VALSARTAN
  2. XELODA [Suspect]
     Active Substance: CAPECITABINE
     Indication: BONE CANCER
     Dosage: 14 DAYS ON, 7 DAYS OFF
     Route: 048
     Dates: start: 20140205
  3. TYLENOL [Concomitant]
     Active Substance: ACETAMINOPHEN
  4. GLIMEPIRIDE. [Concomitant]
     Active Substance: GLIMEPIRIDE
  5. XELODA [Suspect]
     Active Substance: CAPECITABINE
     Route: 048
     Dates: start: 20131016
  6. XELODA [Suspect]
     Active Substance: CAPECITABINE
     Route: 048
     Dates: start: 20140619
  7. XELODA [Suspect]
     Active Substance: CAPECITABINE
     Indication: BREAST CANCER
     Dosage: 14 DAYS ON, 7 DAYS OFF
     Route: 048
     Dates: start: 20131016
  8. JANUMET [Concomitant]
     Active Substance: METFORMIN HYDROCHLORIDE\SITAGLIPTIN PHOSPHATE
  9. XARELTO [Concomitant]
     Active Substance: RIVAROXABAN

REACTIONS (13)
  - Parosmia [Unknown]
  - Toothache [Unknown]
  - Gingival pain [Unknown]
  - Fatigue [Not Recovered/Not Resolved]
  - Paraesthesia [Unknown]
  - Diarrhoea [Unknown]
  - Fatigue [Unknown]
  - Dizziness [Unknown]
  - Hyperaesthesia [Unknown]
  - Nausea [Not Recovered/Not Resolved]
  - Dysgeusia [Unknown]
  - Gastric disorder [Unknown]
  - Decreased appetite [Unknown]
